FAERS Safety Report 5355349-5 (Version None)
Quarter: 2007Q2

REPORT INFORMATION
  Report Type: 
  Country: None (occurrence: None)
  Receive Date: 20070604
  Receipt Date: 20060413
  Transmission Date: 20071010
  Serious: Yes (Other)
  Sender: FDA-Public Use
  Company Number: 8016365

PATIENT
  Age: 17 Year
  Sex: Female

DRUGS (1)
  1. METADATE CD [Suspect]
     Dosage: 60 MG 1/2D PO
     Route: 048

REACTIONS (4)
  - INCORRECT DOSE ADMINISTERED [None]
  - MUSCLE SPASMS [None]
  - PANIC ATTACK [None]
  - PARTIAL SEIZURES [None]
